FAERS Safety Report 4853284-X (Version None)
Quarter: 2005Q4

REPORT INFORMATION
  Report Type: 
  Country: None (occurrence: None)
  Receive Date: 20051214
  Receipt Date: 20051206
  Transmission Date: 20060501
  Serious: Yes (Hospitalization)
  Sender: FDA-Public Use
  Company Number: US-GLAXOSMITHKLINE-A0584872A

PATIENT
  Age: 45 Year
  Sex: Female
  Weight: 77.7 kg

DRUGS (7)
  1. TOPOTECAN [Suspect]
     Dosage: 1.33MG PER DAY
     Route: 042
     Dates: start: 19980630, end: 19980702
  2. CISPLATIN [Suspect]
     Dosage: 89MG SINGLE DOSE
     Route: 042
     Dates: start: 19980630, end: 19980630
  3. KYTRIL [Concomitant]
     Dosage: 2MG PER DAY
     Route: 048
     Dates: start: 19980630, end: 19980702
  4. ATIVAN [Concomitant]
     Dosage: 1MG PER DAY
     Route: 042
     Dates: start: 19980630, end: 19980702
  5. DECADRON [Concomitant]
     Dosage: 1MG PER DAY
     Route: 042
     Dates: start: 19980630, end: 19980702
  6. RED BLOOD CELLS [Concomitant]
     Dates: start: 20050708, end: 20050708
  7. INSULIN [Concomitant]

REACTIONS (2)
  - HYPERGLYCAEMIA [None]
  - UROSEPSIS [None]
